FAERS Safety Report 23241808 (Version 1)
Quarter: 2023Q4

REPORT INFORMATION
  Report Type: Spontaneous
  Country: US (occurrence: None)
  Receive Date: 20231129
  Receipt Date: 20231129
  Transmission Date: 20240110
  Serious: Yes (Disabling)
  Sender: FDA-Public Use
  Company Number: None

PATIENT
  Age: 63 Year
  Sex: Female
  Weight: 69.75 kg

DRUGS (2)
  1. CRESTOR [Suspect]
     Active Substance: ROSUVASTATIN CALCIUM
  2. VITAMIN D3 [Concomitant]
     Active Substance: CHOLECALCIFEROL

REACTIONS (7)
  - Gait disturbance [None]
  - Pain in extremity [None]
  - Arthralgia [None]
  - Insomnia [None]
  - Memory impairment [None]
  - Anxiety [None]
  - Job dissatisfaction [None]

NARRATIVE: CASE EVENT DATE: 20230712
